FAERS Safety Report 14759105 (Version 1)
Quarter: 2018Q2

REPORT INFORMATION
  Report Type: Spontaneous
  Country: IT (occurrence: IT)
  Receive Date: 20180413
  Receipt Date: 20180413
  Transmission Date: 20180711
  Serious: Yes (Congenital Anomaly)
  Sender: FDA-Public Use
  Company Number: IT-SA-2018SA106227

PATIENT
  Age: 0 Day
  Sex: Female
  Weight: 3 kg

DRUGS (2)
  1. HUMALOG [Suspect]
     Active Substance: INSULIN LISPRO
     Indication: DIABETES MELLITUS
     Route: 065
     Dates: start: 20170908, end: 20171109
  2. LANTUS [Suspect]
     Active Substance: INSULIN GLARGINE
     Indication: DIABETES MELLITUS
     Route: 065
     Dates: start: 20170908, end: 20171109

REACTIONS (1)
  - Kidney malformation [Not Recovered/Not Resolved]

NARRATIVE: CASE EVENT DATE: 20180205
